FAERS Safety Report 12467951 (Version 1)
Quarter: 2016Q2

REPORT INFORMATION
  Report Type: Spontaneous
  Country: US (occurrence: None)
  Receive Date: 20160614
  Receipt Date: 20160614
  Transmission Date: 20160815
  Serious: Yes (Other)
  Sender: FDA-Public Use
  Company Number: None

PATIENT
  Age: 58 Year
  Sex: Male
  Weight: 97.52 kg

DRUGS (2)
  1. ALLOPURINOL 100MG [Suspect]
     Active Substance: ALLOPURINOL
     Indication: NEPHROLITHIASIS
     Route: 048
     Dates: start: 20160114, end: 20160201
  2. ALLOPURINOL 100MG [Suspect]
     Active Substance: ALLOPURINOL
     Indication: GOUT
     Route: 048
     Dates: start: 20160114, end: 20160201

REACTIONS (4)
  - Vomiting [None]
  - Diarrhoea [None]
  - Movement disorder [None]
  - Pain [None]

NARRATIVE: CASE EVENT DATE: 20160201
